FAERS Safety Report 15760237 (Version 1)
Quarter: 2018Q4

REPORT INFORMATION
  Report Type: Spontaneous
  Country: IT (occurrence: IT)
  Receive Date: 20181226
  Receipt Date: 20181226
  Transmission Date: 20190205
  Serious: Yes (Other)
  Sender: FDA-Public Use
  Company Number: IT-PFIZER INC-2018525810

PATIENT
  Age: 14 Year
  Sex: Male

DRUGS (2)
  1. RESILIENT [Suspect]
     Active Substance: LITHIUM SULFATE
     Indication: MENTAL DISORDER
     Dosage: 300 MG, 1X/DAY
     Route: 048
     Dates: start: 20170801, end: 20181018
  2. ZOLOFT [Suspect]
     Active Substance: SERTRALINE HYDROCHLORIDE
     Indication: MENTAL DISORDER
     Dosage: 200 MG, 1X/DAY
     Route: 048
     Dates: start: 20170801, end: 20181018

REACTIONS (4)
  - Hypertransaminasaemia [Not Recovered/Not Resolved]
  - Hyperammonaemia [Not Recovered/Not Resolved]
  - Increased appetite [Not Recovered/Not Resolved]
  - Overweight [Not Recovered/Not Resolved]

NARRATIVE: CASE EVENT DATE: 20181018
